FAERS Safety Report 9318797 (Version 1)
Quarter: 2013Q2

REPORT INFORMATION
  Report Type: Spontaneous
  Country: US (occurrence: US)
  Receive Date: 20130530
  Receipt Date: 20130530
  Transmission Date: 20140414
  Serious: No
  Sender: FDA-Public Use
  Company Number: US-NOVEN-13US006258

PATIENT
  Age: 7 Year
  Sex: Male
  Weight: 23.58 kg

DRUGS (1)
  1. DAYTRANA [Suspect]
     Indication: PRODUCT USED FOR UNKNOWN INDICATION
     Dosage: 10 MG, QD
     Route: 062
     Dates: start: 20130118, end: 20130206

REACTIONS (5)
  - Panic reaction [Recovering/Resolving]
  - Fatigue [Recovering/Resolving]
  - Hyperhidrosis [Recovering/Resolving]
  - Anxiety [Recovering/Resolving]
  - Heart rate increased [Recovering/Resolving]
